FAERS Safety Report 13739197 (Version 1)
Quarter: 2017Q3

REPORT INFORMATION
  Report Type: Report from Study
  Country: US (occurrence: US)
  Receive Date: 20170710
  Receipt Date: 20170710
  Transmission Date: 20171127
  Serious: No
  Sender: FDA-Public Use
  Company Number: US-SAOL THERAPEUTICS-2017SAO00251

PATIENT
  Sex: Female

DRUGS (18)
  1. DILAUDID [Suspect]
     Active Substance: HYDROMORPHONE HYDROCHLORIDE
     Dosage: 0.626 MG, \DAY
     Route: 037
     Dates: start: 20160428
  2. DILAUDID [Suspect]
     Active Substance: HYDROMORPHONE HYDROCHLORIDE
     Dosage: 0.7502 MG, \DAY
     Route: 037
     Dates: start: 20170105
  3. DILAUDID [Suspect]
     Active Substance: HYDROMORPHONE HYDROCHLORIDE
     Dosage: 0.8008 MG, \DAY
     Route: 037
     Dates: start: 20160428
  4. COMPOUNDED BACLOFEN [Suspect]
     Active Substance: BACLOFEN
     Dosage: 312.99 ?G, \DAY
     Route: 037
     Dates: start: 20160428
  5. COMPOUNDED BACLOFEN [Suspect]
     Active Substance: BACLOFEN
     Dosage: 427.20 ?G, \DAY
     Route: 037
     Dates: start: 20161123
  6. COMPOUNDED BACLOFEN [Suspect]
     Active Substance: BACLOFEN
     Dosage: 375.09 ?G, \DAY
     Route: 037
     Dates: start: 20170105
  7. DILAUDID [Suspect]
     Active Substance: HYDROMORPHONE HYDROCHLORIDE
     Dosage: 0.924 MG, \DAY
     Route: 037
     Dates: start: 20170105
  8. BUPIVACAINE. [Suspect]
     Active Substance: BUPIVACAINE
     Dosage: 12.52 MG, \DAY
     Route: 037
     Dates: start: 20160428
  9. BUPIVACAINE. [Suspect]
     Active Substance: BUPIVACAINE
     Dosage: 15.004 MG, \DAY
     Route: 037
     Dates: start: 20170105
  10. DILAUDID [Suspect]
     Active Substance: HYDROMORPHONE HYDROCHLORIDE
     Dosage: 0.680 MG, \DAY
     Route: 037
     Dates: start: 20161123
  11. BUPIVACAINE. [Suspect]
     Active Substance: BUPIVACAINE
     Dosage: 13.600 MG, \DAY
     Route: 037
     Dates: start: 20161123
  12. BUPIVACAINE. [Suspect]
     Active Substance: BUPIVACAINE
     Dosage: 17.088 MG, \DAY
     Route: 037
     Dates: start: 20161123
  13. COMPOUNDED BACLOFEN [Suspect]
     Active Substance: BACLOFEN
     Dosage: 400.4 ?G, \DAY
     Route: 037
     Dates: start: 20160428
  14. DILAUDID [Suspect]
     Active Substance: HYDROMORPHONE HYDROCHLORIDE
     Dosage: 0.854 MG, \DAY
     Route: 037
     Dates: start: 20161123
  15. COMPOUNDED BACLOFEN [Suspect]
     Active Substance: BACLOFEN
     Dosage: 340.01 ?G, \DAY
     Route: 037
     Dates: start: 20161123
  16. COMPOUNDED BACLOFEN [Suspect]
     Active Substance: BACLOFEN
     Dosage: 461.99 ?G, \DAY
     Route: 037
     Dates: start: 20170105
  17. BUPIVACAINE. [Suspect]
     Active Substance: BUPIVACAINE
     Dosage: 16.016 MG, \DAY
     Route: 037
     Dates: start: 20160428
  18. BUPIVACAINE. [Suspect]
     Active Substance: BUPIVACAINE
     Dosage: 18.480 MG, \DAY
     Route: 037
     Dates: start: 20170105

REACTIONS (3)
  - Catheter site pain [Unknown]
  - Implant site pain [Recovered/Resolved]
  - Urinary retention [Recovered/Resolved]

NARRATIVE: CASE EVENT DATE: 20161123
